FAERS Safety Report 15402593 (Version 1)
Quarter: 2018Q3

REPORT INFORMATION
  Report Type: Report from Study
  Country: US (occurrence: US)
  Receive Date: 20180919
  Receipt Date: 20180919
  Transmission Date: 20181010
  Serious: Yes (Hospitalization, Other)
  Sender: FDA-Public Use
  Company Number: US-SA-2016SA192428

PATIENT
  Age: 67 Year
  Sex: Female

DRUGS (2)
  1. HUMALOG [Concomitant]
     Active Substance: INSULIN LISPRO
     Dosage: UNK UNK, UNK
  2. INSULIN GLARGINE [Suspect]
     Active Substance: INSULIN GLARGINE
     Indication: TYPE 2 DIABETES MELLITUS
     Dosage: 20 IU, QD
     Route: 058

REACTIONS (15)
  - Thrombosis [Recovered/Resolved]
  - Influenza [Recovered/Resolved]
  - Pneumonia [Recovered/Resolved]
  - Renal transplant [Recovered/Resolved]
  - Fungal infection [Recovered/Resolved]
  - Lethargy [Unknown]
  - Respiratory disorder [Recovered/Resolved]
  - Grip strength decreased [Recovered/Resolved]
  - Hyperhidrosis [Unknown]
  - Muscular weakness [Recovered/Resolved]
  - Blood glucose increased [Unknown]
  - Diabetic coma [Recovered/Resolved]
  - Peripheral swelling [Recovered/Resolved]
  - Blood glucose decreased [Unknown]
  - Product use issue [Unknown]
